FAERS Safety Report 8462801-2 (Version None)
Quarter: 2012Q2

REPORT INFORMATION
  Report Type: 
  Country: None (occurrence: None)
  Receive Date: 20120625
  Receipt Date: 20120618
  Transmission Date: 20120825
  Serious: Yes (Death, Other)
  Sender: FDA-Public Use
  Company Number: NZ-ROCHE-1046899

PATIENT
  Sex: Male
  Weight: 100 kg

DRUGS (4)
  1. PEGASYS [Suspect]
     Dates: start: 20060301, end: 20060401
  2. PEGASYS [Suspect]
     Indication: HEPATITIS C
     Route: 058
     Dates: start: 20060213, end: 20060301
  3. PEGASYS [Suspect]
     Dates: start: 20060401
  4. RIBAVIRIN [Suspect]
     Indication: HEPATITIS C
     Route: 048
     Dates: start: 20060213

REACTIONS (3)
  - DEATH [None]
  - THROMBOCYTOPENIA [None]
  - DRUG INEFFECTIVE [None]
